FAERS Safety Report 8354060-6 (Version None)
Quarter: 2012Q2

REPORT INFORMATION
  Report Type: 
  Country: None (occurrence: None)
  Receive Date: 20120511
  Receipt Date: 20120502
  Transmission Date: 20120825
  Serious: Yes (Hospitalization)
  Sender: FDA-Public Use
  Company Number: CH-ASTRAZENECA-2012SE28873

PATIENT
  Age: 38 Year
  Sex: Male

DRUGS (6)
  1. VANCOMYCIN [Suspect]
     Route: 041
     Dates: start: 20120131, end: 20120222
  2. POLYMYXINE W/NEOMYCINE/VANCOMYCINE [Concomitant]
     Route: 048
     Dates: start: 20120222, end: 20120222
  3. MYCOSTATIN [Concomitant]
     Dosage: 4 ML EVERY FOUR DAYS
     Route: 048
     Dates: start: 20120210, end: 20120306
  4. CANCIDAS [Concomitant]
     Route: 041
     Dates: start: 20120210, end: 20120306
  5. MEROPENEM [Suspect]
     Route: 041
     Dates: start: 20120210, end: 20120210
  6. MYCOPHENOLATE MOFETIL (CELLCEPT) [Concomitant]
     Route: 048
     Dates: start: 20120210, end: 20120225

REACTIONS (1)
  - THROMBOCYTOPENIA [None]
